FAERS Safety Report 8413658-7 (Version None)
Quarter: 2012Q2

REPORT INFORMATION
  Report Type: 
  Country: None (occurrence: None)
  Receive Date: 20120605
  Receipt Date: 20120419
  Transmission Date: 20120825
  Serious: Yes (Other)
  Sender: FDA-Public Use
  Company Number: DE-PFIZER INC-2012093652

PATIENT
  Age: 80 Year
  Sex: Female

DRUGS (25)
  1. SERTRALINE HYDROCHLORIDE [Suspect]
     Dosage: 50 MG, UNK
     Route: 048
     Dates: start: 20110915, end: 20110919
  2. QUETIAPINE FUMARATE [Suspect]
     Dosage: 25 MG, UNK
     Route: 048
     Dates: start: 20110822, end: 20110825
  3. QUETIAPINE FUMARATE [Suspect]
     Dosage: 50 MG, UNK
     Route: 048
     Dates: start: 20110826, end: 20110829
  4. LITHIUM CARBONATE [Suspect]
     Dosage: 675 MG, UNK
     Route: 048
     Dates: start: 20110922
  5. ALENDRONATE SODIUM [Concomitant]
     Dosage: 70 MG, UNK
     Route: 048
  6. SERTRALINE HYDROCHLORIDE [Suspect]
     Dosage: 100 MG, UNK
     Route: 048
     Dates: start: 20110920, end: 20120101
  7. MACROGOL [Concomitant]
     Dosage: UNK
  8. QUETIAPINE FUMARATE [Suspect]
     Dosage: 225 MG, UNK
     Route: 048
     Dates: start: 20110906, end: 20110911
  9. QUETIAPINE FUMARATE [Suspect]
     Dosage: 250 MG, UNK
     Route: 048
     Dates: start: 20110912
  10. ASPIRIN [Suspect]
     Dosage: 120 MG, UNK
     Route: 048
     Dates: start: 20110905, end: 20110914
  11. HALOPERIDOL [Suspect]
     Dosage: 1 MG, UNK
     Route: 048
     Dates: start: 20110913, end: 20110914
  12. LITHIUM CARBONATE [Suspect]
     Dosage: 450 MG, UNK
     Route: 048
     Dates: end: 20110725
  13. AGOMELATIN [Concomitant]
     Dosage: 50 MG, UNK
     Route: 048
     Dates: start: 20110818, end: 20110914
  14. PHENPRO [Concomitant]
     Dosage: 1.5 MG, UNK
     Route: 048
     Dates: start: 20110722, end: 20111012
  15. LISINOPRIL [Concomitant]
     Dosage: 10 MG, UNK
     Route: 048
     Dates: start: 20110811, end: 20110826
  16. QUETIAPINE FUMARATE [Suspect]
     Dosage: 125 MG, UNK
     Route: 048
     Dates: start: 20110830, end: 20110901
  17. LITHIUM CARBONATE [Suspect]
     Dosage: 450 MG, UNK
     Route: 048
     Dates: start: 20110914, end: 20110921
  18. LISINOPRIL [Concomitant]
     Dosage: 20 MG, UNK
     Route: 048
     Dates: start: 20110722, end: 20110810
  19. LISINOPRIL [Concomitant]
     Dosage: 5 MG, UNK
     Route: 048
     Dates: start: 20110827, end: 20111012
  20. QUETIAPINE FUMARATE [Suspect]
     Dosage: 175 MG, UNK
     Route: 048
     Dates: start: 20110902, end: 20110905
  21. AGOMELATIN [Concomitant]
     Dosage: 25 MG, UNK
     Route: 048
     Dates: start: 20110811, end: 20110817
  22. LITHIUM CARBONATE [Suspect]
     Dosage: 225 MG, UNK
     Route: 048
     Dates: start: 20110726, end: 20110811
  23. ASPIRIN [Suspect]
     Dosage: 80 MG, UNK
     Route: 048
     Dates: start: 20110826, end: 20110904
  24. HALOPERIDOL [Suspect]
     Dosage: 0.5 MG, UNK
     Route: 048
     Dates: start: 20110906, end: 20110912
  25. ASPIRIN [Suspect]
     Dosage: 120 MG, UNK
     Route: 048
     Dates: start: 20110722, end: 20110825

REACTIONS (3)
  - DYSPHAGIA [None]
  - SALIVARY HYPERSECRETION [None]
  - ABASIA [None]
